FAERS Safety Report 7834698-2 (Version None)
Quarter: 2011Q4

REPORT INFORMATION
  Report Type: 
  Country: None (occurrence: None)
  Receive Date: 20111024
  Receipt Date: 20111018
  Transmission Date: 20120403
  Serious: Yes (Death)
  Sender: FDA-Public Use
  Company Number: US-ASTRAZENECA-2011SE51934

PATIENT
  Age: 74 Year
  Sex: Female
  Weight: 53.3 kg

DRUGS (2)
  1. FASLODEX [Suspect]
     Indication: BREAST CANCER
     Route: 030
  2. ZOMETA [Concomitant]
     Route: 042
     Dates: start: 20090129, end: 20110525

REACTIONS (2)
  - PULMONARY CONGESTION [None]
  - DISEASE PROGRESSION [None]
